FAERS Safety Report 14650129 (Version 2)
Quarter: 2018Q1

REPORT INFORMATION
  Report Type: Report from Study
  Country: FR (occurrence: FR)
  Receive Date: 20180316
  Receipt Date: 20180322
  Transmission Date: 20180509
  Serious: Yes (Other)
  Sender: FDA-Public Use
  Company Number: FR-PFIZER INC-2018104369

PATIENT
  Age: 68 Year
  Sex: Male

DRUGS (3)
  1. EZETIMIBE. [Concomitant]
     Active Substance: EZETIMIBE
     Route: 065
  2. ATORVASTATIN CALCIUM. [Suspect]
     Active Substance: ATORVASTATIN CALCIUM
     Dosage: 80 MG, DAILY
     Route: 065
  3. PRAVASTATIN. [Suspect]
     Active Substance: PRAVASTATIN
     Indication: LOW DENSITY LIPOPROTEIN
     Dosage: 5 MG, UNK
     Route: 065
     Dates: start: 201306

REACTIONS (4)
  - Immune-mediated necrotising myopathy [Recovered/Resolved]
  - Atrial flutter [Unknown]
  - Cardiomyopathy [Unknown]
  - Pancreatic neoplasm [Unknown]
